FAERS Safety Report 6200163-1 (Version None)
Quarter: 2009Q2

REPORT INFORMATION
  Report Type: 
  Country: None (occurrence: None)
  Receive Date: 20090522
  Receipt Date: 20090511
  Transmission Date: 20091009
  Serious: Yes (Other)
  Sender: FDA-Public Use
  Company Number: AU-WYE-G02952209

PATIENT
  Sex: Female

DRUGS (7)
  1. EFFEXOR XR [Suspect]
     Indication: HOT FLUSH
     Route: 048
     Dates: start: 20040101, end: 20090101
  2. EFFEXOR XR [Suspect]
     Dosage: COMING DOWN OFF EFEXOR, EACH ALTERNATE DAY 150MG
     Dates: start: 20090201, end: 20090204
  3. EFFEXOR XR [Suspect]
     Dosage: 75MG EACH ALTERNATE DAY
     Dates: start: 20090205, end: 20090321
  4. EFFEXOR XR [Suspect]
     Dates: start: 20090322, end: 20090411
  5. PERINDOPRIL ERBUMINE [Concomitant]
     Dosage: 5MG
     Route: 048
     Dates: start: 20070101
  6. OROXINE [Concomitant]
     Dosage: 50 MCG
     Route: 048
  7. LIPITOR [Concomitant]
     Indication: HYPERLIPIDAEMIA
     Dosage: 40MG
     Route: 048
     Dates: start: 20080801

REACTIONS (12)
  - AFFECT LABILITY [None]
  - ANOREXIA [None]
  - BLOOD CALCIUM DECREASED [None]
  - BURNING SENSATION [None]
  - CRYING [None]
  - DRUG WITHDRAWAL SYNDROME [None]
  - FEELING OF DESPAIR [None]
  - HEPATIC FAILURE [None]
  - LIVER FUNCTION TEST ABNORMAL [None]
  - NAUSEA [None]
  - TINNITUS [None]
  - UNEVALUABLE EVENT [None]
